FAERS Safety Report 4657559-9 (Version None)
Quarter: 2005Q2

REPORT INFORMATION
  Report Type: 
  Country: None (occurrence: None)
  Receive Date: 20050506
  Receipt Date: 20050420
  Transmission Date: 20051028
  Serious: Yes (Other)
  Sender: FDA-Public Use
  Company Number: 214218

PATIENT
  Sex: Female

DRUGS (2)
  1. AVASTIN (BEVACIZUMAB) PWDR + SOLVENT,INFUSION SOLN, 100MG [Suspect]
     Indication: OVARIAN CANCER
     Dosage: 5 MG/KG
  2. CYTOXAN [Suspect]
     Indication: OVARIAN CANCER

REACTIONS (1)
  - ASCITES [None]
